FAERS Safety Report 12797954 (Version 2)
Quarter: 2016Q4

REPORT INFORMATION
  Report Type: Report from Study
  Country: FR (occurrence: FR)
  Receive Date: 20160930
  Receipt Date: 20161010
  Transmission Date: 20170207
  Serious: Yes (Other)
  Sender: FDA-Public Use
  Company Number: FR-ROCHE-1834671

PATIENT
  Age: 67 Year
  Sex: Female

DRUGS (44)
  1. BENDAMUSTINE [Suspect]
     Active Substance: BENDAMUSTINE
     Dosage: START TIME: 10.45 AND END TIME: 11.40 C2D2
     Route: 042
     Dates: start: 20140506, end: 20140506
  2. BENDAMUSTINE [Suspect]
     Active Substance: BENDAMUSTINE
     Dosage: START TIME: 18.00 AND END TIME: 19.00 C3D1
     Route: 042
     Dates: start: 20140602, end: 20140602
  3. BENDAMUSTINE [Suspect]
     Active Substance: BENDAMUSTINE
     Dosage: START TIME: 10.30 AND END TIME: 11.15 C4D2
     Route: 042
     Dates: start: 20140701, end: 20140701
  4. BENDAMUSTINE [Suspect]
     Active Substance: BENDAMUSTINE
     Dosage: START TIME: 17.55 AND END TIME: 19.10 C5D1
     Route: 042
     Dates: start: 20140728, end: 20140728
  5. BENDAMUSTINE [Suspect]
     Active Substance: BENDAMUSTINE
     Dosage: START TIME: 08.45 AND END TIME: 10.00 C5D2
     Route: 042
     Dates: start: 20140729, end: 20140729
  6. SOLU-MEDROL [Concomitant]
     Active Substance: METHYLPREDNISOLONE SODIUM SUCCINATE
     Route: 042
     Dates: start: 20140408, end: 20140825
  7. INEXIUM [Concomitant]
     Active Substance: ESOMEPRAZOLE
     Route: 048
     Dates: start: 20140407
  8. ACUPAN [Concomitant]
     Active Substance: NEFOPAM HYDROCHLORIDE
     Route: 048
     Dates: start: 20140408, end: 20140411
  9. PENTACARINAT [Concomitant]
     Active Substance: PENTAMIDINE ISETHIONATE
     Dosage: SINGLE DOSE
     Route: 050
     Dates: start: 20140630, end: 20140630
  10. PENTACARINAT [Concomitant]
     Active Substance: PENTAMIDINE ISETHIONATE
     Dosage: SINGLE DOSE
     Route: 050
     Dates: start: 20140825, end: 20140825
  11. OBINUTUZUMAB [Suspect]
     Active Substance: OBINUTUZUMAB
     Dosage: START TIME: 13.30, END IME: 17.20 C3D1
     Route: 042
     Dates: start: 20140602, end: 20140602
  12. BENDAMUSTINE [Suspect]
     Active Substance: BENDAMUSTINE
     Indication: CHRONIC LYMPHOCYTIC LEUKAEMIA
     Dosage: START TIME: 16.40 AND END TIME: 17.35 C1D1
     Route: 042
     Dates: start: 20140408, end: 20140408
  13. BENDAMUSTINE [Suspect]
     Active Substance: BENDAMUSTINE
     Dosage: START TIME: 18.30 AND END TIME: 19.40 C2D1
     Route: 042
     Dates: start: 20140505, end: 20140505
  14. PENTACARINAT [Concomitant]
     Active Substance: PENTAMIDINE ISETHIONATE
     Dosage: SINGLE DOSE
     Route: 050
     Dates: start: 20140728, end: 20140728
  15. OBINUTUZUMAB [Suspect]
     Active Substance: OBINUTUZUMAB
     Dosage: START TIME: 13.30, END IME: 17.15 C5D1
     Route: 042
     Dates: start: 20140728, end: 20140728
  16. PRIMPERAN [Concomitant]
     Active Substance: METOCLOPRAMIDE HYDROCHLORIDE
     Route: 042
     Dates: start: 20140411, end: 20140411
  17. PRIMPERAN [Concomitant]
     Active Substance: METOCLOPRAMIDE HYDROCHLORIDE
     Dosage: AS REQUIRED
     Route: 048
     Dates: start: 20140417
  18. DUPHALAC (FRANCE) [Concomitant]
     Active Substance: LACTULOSE
     Dosage: AS REQUIRED
     Route: 048
     Dates: start: 20140424, end: 20140727
  19. OBINUTUZUMAB [Suspect]
     Active Substance: OBINUTUZUMAB
     Dosage: START TIME: 12.00, END IME: 15.45 C1D15
     Route: 042
     Dates: start: 20140422, end: 20140422
  20. OBINUTUZUMAB [Suspect]
     Active Substance: OBINUTUZUMAB
     Dosage: START TIME: 13.00, END IME: 16.45 C6D1
     Route: 042
     Dates: start: 20140825, end: 20140825
  21. BENDAMUSTINE [Suspect]
     Active Substance: BENDAMUSTINE
     Dosage: START TIME: 11.00 AND END TIME: 12.05 C6D2
     Route: 042
     Dates: start: 20140826, end: 20140826
  22. EZETROL [Concomitant]
     Active Substance: EZETIMIBE
     Route: 048
     Dates: start: 2003
  23. PARACETAMOL [Concomitant]
     Active Substance: ACETAMINOPHEN
     Route: 042
     Dates: start: 20140408, end: 20140825
  24. ZOPHREN [Concomitant]
     Active Substance: ONDANSETRON
     Route: 042
     Dates: start: 20140408, end: 20140410
  25. PENTACARINAT [Concomitant]
     Active Substance: PENTAMIDINE ISETHIONATE
     Dosage: SINGLE DOSE
     Route: 050
     Dates: start: 20140412, end: 20140412
  26. OBINUTUZUMAB [Suspect]
     Active Substance: OBINUTUZUMAB
     Dosage: START TIME: 11.20, END IME: 15.05 C1D8
     Route: 042
     Dates: start: 20140415, end: 20140415
  27. OBINUTUZUMAB [Suspect]
     Active Substance: OBINUTUZUMAB
     Dosage: START TIME: 12.45, END IME: 16.30 C4D1
     Route: 042
     Dates: start: 20140630, end: 20140630
  28. BENDAMUSTINE [Suspect]
     Active Substance: BENDAMUSTINE
     Dosage: START TIME: 20.00 AND END TIME: 21.00 C1D2
     Route: 042
     Dates: start: 20140409, end: 20140409
  29. BENDAMUSTINE [Suspect]
     Active Substance: BENDAMUSTINE
     Dosage: START TIME: 10.50 AND END TIME: 12.05 C3D2
     Route: 042
     Dates: start: 20140603, end: 20140603
  30. BENDAMUSTINE [Suspect]
     Active Substance: BENDAMUSTINE
     Dosage: START TIME: 17.00 AND END TIME: 18.00 C4D1
     Route: 042
     Dates: start: 20140630, end: 20140630
  31. BENDAMUSTINE [Suspect]
     Active Substance: BENDAMUSTINE
     Dosage: START TIME: 17.20 AND END TIME: 18.20 C6D1
     Route: 042
     Dates: start: 20140825, end: 20140825
  32. FASTURTEC [Concomitant]
     Active Substance: RASBURICASE
     Route: 048
     Dates: start: 20140408, end: 20140410
  33. ZELITREX [Concomitant]
     Active Substance: VALACYCLOVIR HYDROCHLORIDE
     Dosage: SINGLE DOSE
     Route: 048
     Dates: start: 20140407, end: 20140407
  34. FUNGIZONE [Concomitant]
     Active Substance: AMPHOTERICIN B
     Route: 061
     Dates: start: 20140424, end: 20140503
  35. PYOSTACINE [Concomitant]
     Active Substance: PRISTINAMYCIN
     Route: 048
     Dates: start: 20141222
  36. OBINUTUZUMAB [Suspect]
     Active Substance: OBINUTUZUMAB
     Indication: CHRONIC LYMPHOCYTIC LEUKAEMIA
     Dosage: START TIME: 11.20, END IME: 11.45 C1D1 TEMPORARILY INTERRUPTED
     Route: 042
     Dates: start: 20140408, end: 20140408
  37. OBINUTUZUMAB [Suspect]
     Active Substance: OBINUTUZUMAB
     Dosage: START TIME: 13.45, END IME: 18.10 C1D2
     Route: 042
     Dates: start: 20140409, end: 20140409
  38. OBINUTUZUMAB [Suspect]
     Active Substance: OBINUTUZUMAB
     Dosage: START TIME: 14.10, END IME: 18.00 C2D1
     Route: 042
     Dates: start: 20140505, end: 20140505
  39. SOLU-MEDROL [Concomitant]
     Active Substance: METHYLPREDNISOLONE SODIUM SUCCINATE
     Route: 042
     Dates: start: 20140408, end: 20140408
  40. POLARAMINE [Concomitant]
     Active Substance: DEXCHLORPHENIRAMINE MALEATE
     Route: 042
     Dates: start: 20140408, end: 20140825
  41. ZOPHREN [Concomitant]
     Active Substance: ONDANSETRON
     Route: 048
     Dates: start: 20140424, end: 20140601
  42. ZELITREX [Concomitant]
     Active Substance: VALACYCLOVIR HYDROCHLORIDE
     Route: 048
     Dates: start: 20140417
  43. PENTACARINAT [Concomitant]
     Active Substance: PENTAMIDINE ISETHIONATE
     Dosage: SINGLE DOSE
     Route: 050
     Dates: start: 20140506, end: 20140506
  44. SPASFON (FRANCE) [Concomitant]
     Active Substance: PHLOROGLUCINOL
     Dosage: S REQUIRED
     Route: 048
     Dates: start: 20140604

REACTIONS (1)
  - Basal cell carcinoma [Recovered/Resolved]

NARRATIVE: CASE EVENT DATE: 20160728
